FAERS Safety Report 4987683-2 (Version None)
Quarter: 2006Q2

REPORT INFORMATION
  Report Type: 
  Country: None (occurrence: None)
  Receive Date: 20060424
  Receipt Date: 20060405
  Transmission Date: 20061013
  Serious: Yes (Other)
  Sender: FDA-Public Use
  Company Number: US200604001233

PATIENT
  Sex: Female

DRUGS (8)
  1. CYMBALTA [Suspect]
     Indication: MAJOR DEPRESSION
     Dosage: SEE IMAGE
     Dates: end: 20060320
  2. CYMBALTA [Suspect]
     Indication: MAJOR DEPRESSION
     Dosage: SEE IMAGE
     Dates: start: 20050331
  3. RISPERDAL [Concomitant]
  4. KLONOPIN [Concomitant]
  5. COUMADIN [Concomitant]
  6. LASIX [Concomitant]
  7. NEXIUM [Concomitant]
  8. TENORMIN [Concomitant]

REACTIONS (1)
  - DEEP VEIN THROMBOSIS [None]
